FAERS Safety Report 22098180 (Version 1)
Quarter: 2023Q1

REPORT INFORMATION
  Report Type: Spontaneous
  Country: US (occurrence: US)
  Receive Date: 20230315
  Receipt Date: 20230315
  Transmission Date: 20230418
  Serious: No
  Sender: FDA-Public Use
  Company Number: US-BRISTOL-MYERS SQUIBB COMPANY-2023-037256

PATIENT
  Age: 82 Year
  Sex: Female
  Weight: 101.15 kg

DRUGS (1)
  1. LENALIDOMIDE [Suspect]
     Active Substance: LENALIDOMIDE
     Indication: Plasma cell myeloma
     Dosage: FREQUENCY: D 1-21 Q 28 DAYS
     Route: 048
     Dates: start: 20190514

REACTIONS (1)
  - Platelet count decreased [Recovered/Resolved]
